FAERS Safety Report 8398783-1 (Version None)
Quarter: 2012Q2

REPORT INFORMATION
  Report Type: 
  Country: None (occurrence: None)
  Receive Date: 20120531
  Receipt Date: 20120528
  Transmission Date: 20120825
  Serious: Yes (Other)
  Sender: FDA-Public Use
  Company Number: BR-BAYER-2012-053235

PATIENT
  Age: 50 Year
  Sex: Female

DRUGS (1)
  1. ESTRADIOL VALERATE/DIENOGEST [Suspect]
     Indication: UTERINE LEIOMYOMA
     Dosage: UNK
     Route: 048

REACTIONS (2)
  - UTERINE ENLARGEMENT [None]
  - UTERINE LEIOMYOMA [None]
